FAERS Safety Report 8466148-X (Version None)
Quarter: 2012Q2

REPORT INFORMATION
  Report Type: 
  Country: None (occurrence: None)
  Receive Date: 20120626
  Receipt Date: 20120620
  Transmission Date: 20120825
  Serious: Yes (Other)
  Sender: FDA-Public Use
  Company Number: FR-PFIZER INC-2012148049

PATIENT
  Age: 62 Year
  Sex: Male

DRUGS (17)
  1. FLUOROURACIL [Suspect]
     Dosage: 680 MG, CYCLIC (4 CYCLES)
     Route: 042
     Dates: start: 20120419, end: 20120419
  2. ERBITUX [Suspect]
     Dosage: 680 MG, CYCLIC (4 CYCLES)
     Route: 042
     Dates: start: 20120419, end: 20120419
  3. FLUOROURACIL [Suspect]
     Indication: COLON CANCER METASTATIC
     Dosage: 680 MG, CYCLIC (4 CYCLES)
     Route: 042
     Dates: start: 20120223, end: 20120223
  4. ERBITUX [Suspect]
     Indication: COLON CANCER METASTATIC
     Dosage: 680 MG, CYCLIC (4 CYCLES)
     Route: 042
     Dates: start: 20120223, end: 20120223
  5. IRINOTECAN HCL [Suspect]
     Dosage: 200 MG, CYCLIC (4 CYCLES)
     Route: 042
     Dates: start: 20120314, end: 20120314
  6. IRINOTECAN HCL [Suspect]
     Dosage: 200 MG, CYCLIC (4 CYCLES)
     Route: 042
     Dates: start: 20120419, end: 20120419
  7. FLUOROURACIL [Suspect]
     Dosage: 680 MG, CYCLIC (4 CYCLES)
     Route: 042
     Dates: start: 20120314, end: 20120314
  8. LEVOLEUCOVORIN CALCIUM [Suspect]
     Indication: COLON CANCER METASTATIC
     Dosage: CYCLIC (4 CYCLES)
     Route: 042
     Dates: start: 20120223, end: 20120223
  9. FLUOROURACIL [Suspect]
     Dosage: 680 MG, CYCLIC (4 CYCLES)
     Route: 042
     Dates: start: 20120329, end: 20120329
  10. LEVOLEUCOVORIN CALCIUM [Suspect]
     Dosage: CYCLIC (4 CYCLES)
     Route: 042
     Dates: start: 20120329, end: 20120329
  11. IRINOTECAN HCL [Suspect]
     Indication: COLON CANCER METASTATIC
     Dosage: 200 MG, CYCLIC (4 CYCLES)
     Route: 042
     Dates: start: 20120223, end: 20120223
  12. IRINOTECAN HCL [Suspect]
     Dosage: 200 MG, CYCLIC (4 CYCLES)
     Route: 042
     Dates: start: 20120329, end: 20120329
  13. NEULASTA [Concomitant]
     Dosage: UNK
     Dates: start: 20120223, end: 20120419
  14. LEVOLEUCOVORIN CALCIUM [Suspect]
     Dosage: CYCLIC (4 CYCLES)
     Route: 042
     Dates: start: 20120419, end: 20120419
  15. ERBITUX [Suspect]
     Dosage: 680 MG, CYCLIC (4 CYCLES)
     Route: 042
     Dates: start: 20120314, end: 20120314
  16. LEVOLEUCOVORIN CALCIUM [Suspect]
     Dosage: CYCLIC (4 CYCLES)
     Route: 042
     Dates: start: 20120314, end: 20120314
  17. ERBITUX [Suspect]
     Dosage: 680 MG, CYCLIC (4 CYCLES)
     Route: 042
     Dates: start: 20120329, end: 20120329

REACTIONS (2)
  - KERATITIS [None]
  - BLEPHARITIS [None]
